FAERS Safety Report 9389317 (Version 1)
Quarter: 2013Q3

REPORT INFORMATION
  Report Type: Spontaneous
  Country: US (occurrence: US)
  Receive Date: 20130708
  Receipt Date: 20130708
  Transmission Date: 20140515
  Serious: No
  Sender: FDA-Public Use
  Company Number: US-AMGEN-USASP2013045034

PATIENT
  Age: 19 Year
  Sex: Female

DRUGS (1)
  1. ENBREL [Suspect]
     Indication: RHEUMATOID ARTHRITIS
     Dosage: 25 MG, AS NECESSARY
     Route: 065
     Dates: start: 2006, end: 201304

REACTIONS (2)
  - Arthralgia [Not Recovered/Not Resolved]
  - Injection site pain [Recovered/Resolved]
